FAERS Safety Report 6584958-0 (Version None)
Quarter: 2010Q1

REPORT INFORMATION
  Report Type: 
  Country: None (occurrence: None)
  Receive Date: 20100217
  Receipt Date: 20100209
  Transmission Date: 20100710
  Serious: Yes (Other)
  Sender: FDA-Public Use
  Company Number: US-ALEXION-A201000155

PATIENT
  Sex: Female

DRUGS (4)
  1. SOLIRIS [Suspect]
     Indication: PAROXYSMAL NOCTURNAL HAEMOGLOBINURIA
     Dosage: 280 MG, SINGLE
     Route: 042
     Dates: start: 20071016, end: 20071016
  2. SOLIRIS [Suspect]
     Dosage: 7 ML, SINGLE
     Route: 042
     Dates: start: 20071017, end: 20071017
  3. SOLIRIS [Suspect]
     Dosage: 600 MG, WEEKLY X4
     Route: 042
     Dates: start: 20090803, end: 20090801
  4. SOLIRIS [Suspect]
     Dosage: 900 MG, UNK
     Route: 042
     Dates: start: 20090831

REACTIONS (6)
  - BLOOD LACTATE DEHYDROGENASE INCREASED [None]
  - CHROMATURIA [None]
  - DIARRHOEA [None]
  - HAEMOGLOBIN DECREASED [None]
  - LOSS OF CONSCIOUSNESS [None]
  - VOMITING [None]
